FAERS Safety Report 6425181-X (Version None)
Quarter: 2009Q4

REPORT INFORMATION
  Report Type: 
  Country: None (occurrence: None)
  Receive Date: 20091102
  Receipt Date: 20091102
  Transmission Date: 20100525
  Serious: Yes (Life-Threatening)
  Sender: FDA-Public Use
  Company Number: None

PATIENT
  Age: 49 Year
  Sex: Female
  Weight: 73.4827 kg

DRUGS (1)
  1. CIPROFLOXACIN HCL [Suspect]
     Indication: INFLUENZA
     Dosage: 1 TABLET TWICE DAILY
     Dates: start: 20091026, end: 20091028

REACTIONS (12)
  - AGITATION [None]
  - BACK PAIN [None]
  - COLD SWEAT [None]
  - DYSGEUSIA [None]
  - FEELING ABNORMAL [None]
  - HEADACHE [None]
  - HYPOAESTHESIA [None]
  - INSOMNIA [None]
  - MIDDLE INSOMNIA [None]
  - PALPITATIONS [None]
  - SLEEP DISORDER [None]
  - TINNITUS [None]
